FAERS Safety Report 13269598 (Version 1)
Quarter: 2017Q1

REPORT INFORMATION
  Report Type: Spontaneous
  Country: ES (occurrence: ES)
  Receive Date: 20170224
  Receipt Date: 20170224
  Transmission Date: 20170428
  Serious: Yes (Hospitalization, Other)
  Sender: FDA-Public Use
  Company Number: ES-BAYER-2017-024283

PATIENT
  Age: 82 Year
  Sex: Female

DRUGS (2)
  1. ATORVASTATIN [Suspect]
     Active Substance: ATORVASTATIN
     Dosage: 80 MG, QD
  2. ACETYLSALICYLIC ACID (} 100 MG) [Suspect]
     Active Substance: ASPIRIN
     Dosage: 300 MG, QD

REACTIONS (9)
  - Cerebral haemorrhage [Recovered/Resolved]
  - Vertebral artery stenosis [None]
  - Aortic arteriosclerosis [Unknown]
  - Accident [Unknown]
  - Cerebral artery stenosis [None]
  - Product use issue [Unknown]
  - Sinus tachycardia [Unknown]
  - Cerebral infarction [Recovered/Resolved]
  - Femur fracture [Unknown]
